FAERS Safety Report 7654810-8 (Version None)
Quarter: 2011Q3

REPORT INFORMATION
  Report Type: 
  Country: None (occurrence: None)
  Receive Date: 20110803
  Receipt Date: 20110803
  Transmission Date: 20111222
  Serious: Yes (Other)
  Sender: FDA-Public Use
  Company Number: None

PATIENT
  Age: 54 Year
  Sex: Female
  Weight: 83.9154 kg

DRUGS (4)
  1. CORTISONE ACETATE [Concomitant]
  2. LEVOFLOXACIN [Concomitant]
  3. MACROBID [Suspect]
     Indication: CYSTITIS
     Dosage: 100 MG BID ORAL
     Route: 048
     Dates: start: 20110705, end: 20110711
  4. COMPAZINE [Concomitant]

REACTIONS (7)
  - VOMITING [None]
  - CHILLS [None]
  - PYREXIA [None]
  - RASH GENERALISED [None]
  - NAUSEA [None]
  - DRUG HYPERSENSITIVITY [None]
  - HYPERHIDROSIS [None]
